FAERS Safety Report 8128067-8 (Version None)
Quarter: 2012Q1

REPORT INFORMATION
  Report Type: 
  Country: None (occurrence: None)
  Receive Date: 20120210
  Receipt Date: 20120207
  Transmission Date: 20120608
  Serious: Yes (Other)
  Sender: FDA-Public Use
  Company Number: BR-PFIZER INC-2011283926

PATIENT
  Age: 61 Year
  Sex: Female
  Weight: 53 kg

DRUGS (6)
  1. ASPIRIN [Concomitant]
     Indication: BLOOD DISORDER
     Dosage: UNK, ONCE DAILY (AS NEEDED)
     Dates: start: 20110101
  2. SIMVASTATIN [Concomitant]
     Indication: BLOOD CHOLESTEROL
     Dosage: UNK, 1X/DAY
     Dates: start: 20110101
  3. METHYLDOPA [Concomitant]
     Indication: HYPERTENSION
  4. METHYLDOPA [Concomitant]
     Indication: BLOOD PRESSURE
     Dosage: UNK, 1X/DAY
     Dates: start: 20110101
  5. VARENICLINE TARTRATE [Suspect]
     Indication: SMOKING CESSATION THERAPY
     Dosage: UNK
     Route: 048
     Dates: start: 20111109, end: 20111101
  6. VARENICLINE TARTRATE [Suspect]
     Dosage: 1 MG, 2X/DAY
     Route: 048
     Dates: start: 20111101

REACTIONS (5)
  - WEIGHT DECREASED [None]
  - ABNORMAL DREAMS [None]
  - VIRAL INFECTION [None]
  - DISCOMFORT [None]
  - NAUSEA [None]
